FAERS Safety Report 10017650 (Version 1)
Quarter: 2014Q1

REPORT INFORMATION
  Report Type: Spontaneous
  Country: US (occurrence: US)
  Receive Date: 20140318
  Receipt Date: 20140318
  Transmission Date: 20141002
  Serious: No
  Sender: FDA-Public Use
  Company Number: US-BRISTOL-MYERS SQUIBB COMPANY-17419755

PATIENT
  Age: 70 Year
  Sex: Male

DRUGS (1)
  1. ERBITUX [Suspect]

REACTIONS (4)
  - Skin disorder [Unknown]
  - Hair disorder [Unknown]
  - Nail disorder [Unknown]
  - Onychalgia [Unknown]
